FAERS Safety Report 4665352-6 (Version None)
Quarter: 2005Q2

REPORT INFORMATION
  Report Type: 
  Country: None (occurrence: None)
  Receive Date: 20050517
  Receipt Date: 20050208
  Transmission Date: 20051028
  Serious: No
  Sender: FDA-Public Use
  Company Number: S05-USA-00877-01

PATIENT
  Age: 64 Year
  Sex: Female

DRUGS (4)
  1. NAMENDA [Suspect]
     Indication: DEMENTIA
  2. NAMENDA [Suspect]
     Indication: DEMENTIA
  3. ARICEPT [Concomitant]
  4. PROTONIX [Concomitant]

REACTIONS (2)
  - HALLUCINATION, VISUAL [None]
  - INCORRECT DOSE ADMINISTERED [None]
